FAERS Safety Report 6559210-X (Version None)
Quarter: 2010Q1

REPORT INFORMATION
  Report Type: 
  Country: None (occurrence: None)
  Receive Date: 20100129
  Receipt Date: 20090917
  Transmission Date: 20100710
  Serious: No
  Sender: FDA-Public Use
  Company Number: US-ABBOTT-09P-163-0577947-00

PATIENT
  Sex: Male
  Weight: 44.492 kg

DRUGS (6)
  1. HUMIRA [Suspect]
     Indication: CROHN'S DISEASE
     Dates: end: 20090513
  2. HUMIRA [Suspect]
     Dates: start: 20090630
  3. METHOTREXATE [Concomitant]
     Indication: DRUG USE FOR UNKNOWN INDICATION
     Dates: start: 20090501
  4. METHOTREXATE [Concomitant]
     Indication: ABDOMINAL DISCOMFORT
  5. METHOTREXATE [Concomitant]
     Indication: FLATULENCE
  6. METHOTREXATE [Concomitant]
     Indication: DIARRHOEA

REACTIONS (7)
  - INJECTION SITE HAEMATOMA [None]
  - INJECTION SITE HAEMORRHAGE [None]
  - INJECTION SITE PAIN [None]
  - MALAISE [None]
  - PULMONARY CONGESTION [None]
  - PYREXIA [None]
  - VIRAL INFECTION [None]
